FAERS Safety Report 25421331 (Version 3)
Quarter: 2025Q4

REPORT INFORMATION
  Report Type: Report from Study
  Country: US (occurrence: US)
  Receive Date: 20250611
  Receipt Date: 20251019
  Transmission Date: 20260118
  Serious: Yes (Hospitalization, Other)
  Sender: ABBVIE
  Company Number: US-ABBVIE-6317929

PATIENT
  Age: 78 Year
  Sex: Male

DRUGS (2)
  1. CREON [Suspect]
     Active Substance: PANCRELIPASE AMYLASE\PANCRELIPASE LIPASE\PANCRELIPASE PROTEASE
     Indication: Product used for unknown indication
     Dosage: TIME INTERVAL: 0.33333333 DAYS: FORM STRENGTH: 36000 DOSAGE FORM
     Route: 048
     Dates: start: 20221231
  2. CREON [Suspect]
     Active Substance: PANCRELIPASE AMYLASE\PANCRELIPASE LIPASE\PANCRELIPASE PROTEASE
     Indication: Product used for unknown indication
     Route: 048

REACTIONS (8)
  - Pneumonia bacterial [Unknown]
  - Product quality issue [Not Recovered/Not Resolved]
  - Frequent bowel movements [Unknown]
  - Bronchiectasis [Unknown]
  - Deafness [Not Recovered/Not Resolved]
  - Delusional disorder, unspecified type [Unknown]
  - Amnesia [Unknown]
  - Dysphagia [Unknown]

NARRATIVE: CASE EVENT DATE: 20250501
